FAERS Safety Report 8307280-0 (Version None)
Quarter: 2012Q2

REPORT INFORMATION
  Report Type: 
  Country: None (occurrence: None)
  Receive Date: 20120424
  Receipt Date: 20120414
  Transmission Date: 20120825
  Serious: Yes (Hospitalization, Other)
  Sender: FDA-Public Use
  Company Number: US-JNJFOC-20120407250

PATIENT
  Sex: Male
  Weight: 61.24 kg

DRUGS (3)
  1. DURAGESIC-100 [Suspect]
     Indication: BACK PAIN
     Route: 062
     Dates: end: 20051201
  2. FENTANYL-100 [Suspect]
     Indication: BACK PAIN
     Route: 062
  3. DURAGESIC-100 [Suspect]
     Route: 062
     Dates: start: 20051201

REACTIONS (10)
  - DRUG INEFFECTIVE [None]
  - THINKING ABNORMAL [None]
  - PRODUCT PACKAGING QUANTITY ISSUE [None]
  - FALL [None]
  - BACK DISORDER [None]
  - PRODUCT LABEL CONFUSION [None]
  - FACIAL BONES FRACTURE [None]
  - HYPOAESTHESIA [None]
  - DEHYDRATION [None]
  - HEPATIC ENZYME INCREASED [None]
